FAERS Safety Report 9692028 (Version 1)
Quarter: 2013Q4

REPORT INFORMATION
  Report Type: Spontaneous
  Country: US (occurrence: US)
  Receive Date: 20131118
  Receipt Date: 20131118
  Transmission Date: 20140711
  Serious: No
  Sender: FDA-Public Use
  Company Number: US-BIOGENIDEC-2013BI107919

PATIENT
  Sex: Female

DRUGS (2)
  1. TYSABRI [Suspect]
     Indication: MULTIPLE SCLEROSIS
  2. AUBAGIO [Concomitant]

REACTIONS (3)
  - Adverse event [Recovered/Resolved]
  - Influenza like illness [Recovered/Resolved]
  - Alopecia [Not Recovered/Not Resolved]
